FAERS Safety Report 6524584-2 (Version None)
Quarter: 2010Q1

REPORT INFORMATION
  Report Type: 
  Country: None (occurrence: None)
  Receive Date: 20100104
  Receipt Date: 20091222
  Transmission Date: 20100710
  Serious: Yes (Hospitalization)
  Sender: FDA-Public Use
  Company Number: PHEH2009US15609

PATIENT
  Sex: Female

DRUGS (8)
  1. EXJADE [Suspect]
     Indication: MYELODYSPLASTIC SYNDROME
     Dosage: 1500 MG, QD
     Route: 048
     Dates: start: 20091022, end: 20091103
  2. VIDAZA [Concomitant]
     Dosage: UNK
  3. XALATAN [Concomitant]
     Dosage: UNK
  4. NEUPOGEN [Concomitant]
     Dosage: UNK
  5. KYTRIL [Concomitant]
     Dosage: UNK
  6. METOPROLOL TARTRATE [Concomitant]
     Dosage: UNK
  7. TIMOLOL MALEATE [Concomitant]
     Dosage: UNK
  8. TRIAMTERENE AND HYDROCHLOROTHIAZIDE [Concomitant]
     Dosage: UNK

REACTIONS (3)
  - NAUSEA [None]
  - SEPSIS [None]
  - URINE ABNORMALITY [None]
